FAERS Safety Report 10045636 (Version 1)
Quarter: 2014Q1

REPORT INFORMATION
  Report Type: Spontaneous
  Country: US (occurrence: US)
  Receive Date: 20140328
  Receipt Date: 20140328
  Transmission Date: 20141002
  Serious: Yes (Other)
  Sender: FDA-Public Use
  Company Number: US-BRISTOL-MYERS SQUIBB COMPANY-20549846

PATIENT
  Age: 67 Year
  Sex: Male
  Weight: 88.43 kg

DRUGS (1)
  1. BYDUREON [Suspect]
     Indication: TYPE 2 DIABETES MELLITUS
     Dosage: NO OF DOSES-2
     Route: 058
     Dates: start: 20140311

REACTIONS (1)
  - Hiccups [Not Recovered/Not Resolved]
